FAERS Safety Report 5852974-X (Version None)
Quarter: 2008Q3

REPORT INFORMATION
  Report Type: 
  Country: None (occurrence: None)
  Receive Date: 20080821
  Receipt Date: 20080811
  Transmission Date: 20090109
  Serious: Yes (Hospitalization)
  Sender: FDA-Public Use
  Company Number: US-SANOFI-SYNTHELABO-D01200805615

PATIENT
  Sex: Female
  Weight: 65.3 kg

DRUGS (11)
  1. CLOPIDOGREL [Suspect]
     Indication: ACUTE CORONARY SYNDROME
     Dosage: 300 MG (+PLACEBO) D1 FOLLOWED BY 75 MG (+PLACEBO) D2 TO D7; 75 MG FROM D8 TO 30
     Route: 048
  2. REQUIP [Concomitant]
     Dosage: 1 MG
     Route: 065
  3. PRAVACHOL [Concomitant]
  4. PROTONIX [Concomitant]
  5. HYZAAR [Concomitant]
     Dosage: 25 MG
     Route: 065
  6. LABETALOL HCL [Concomitant]
     Dosage: 200 MG
     Route: 065
  7. NITROGLYCERIN [Concomitant]
  8. LASIX [Concomitant]
  9. LOVENOX [Concomitant]
  10. CLOPIDOGREL [Suspect]
     Indication: ACUTE CORONARY SYNDROME
     Dosage: 600 MG LD D1 FOLLOWED BY 150 MG FROM D2 TO D7; 75 MG FROM D8 TO 30
     Route: 048
     Dates: start: 20080729
  11. ASA LOW DOSE [Concomitant]
     Indication: ACUTE CORONARY SYNDROME
     Dosage: AT LEAST 300 MG D1; 75-100 MG FROM D2 TO D30
     Route: 048
     Dates: start: 20080729

REACTIONS (1)
  - VASCULAR PSEUDOANEURYSM [None]
